FAERS Safety Report 20245409 (Version 4)
Quarter: 2022Q4

REPORT INFORMATION
  Report Type: Spontaneous
  Country: IN (occurrence: IN)
  Receive Date: 20211229
  Receipt Date: 20221018
  Transmission Date: 20230113
  Serious: Yes (Hospitalization, Other)
  Sender: FDA-Public Use
  Company Number: IN-PFIZER INC-2021171874

PATIENT
  Age: 60 Year
  Sex: Female
  Weight: 76.3 kg

DRUGS (5)
  1. PALBOCICLIB [Suspect]
     Active Substance: PALBOCICLIB
     Indication: Breast cancer metastatic
     Dosage: 125 MG, CYCLIC (ONCE DAILY, 21 DAYS AND 7 DAYS OFF)
     Route: 048
     Dates: start: 20210212
  2. LETROZOLE [Concomitant]
     Active Substance: LETROZOLE
     Dosage: 2.5 MG, 1X/DAY
  3. TRSON D [Concomitant]
     Dosage: UNK, 2X/DAY
  4. ZOLEDRONIC ACID [Concomitant]
     Active Substance: ZOLEDRONIC ACID
     Dosage: 4 MG (4MG IN 100ML IV OVER 30MIN EVERY 3 MONTH)
     Route: 042
  5. CCM [Concomitant]
     Dosage: UNK, 1X/DAY (1 DAILY FOR 1 MONTH)

REACTIONS (5)
  - Diabetes mellitus inadequate control [Unknown]
  - Urinary tract infection [Unknown]
  - Infection [Unknown]
  - Carbuncle [Unknown]
  - Neoplasm progression [Unknown]
